FAERS Safety Report 5573440-5 (Version None)
Quarter: 2007Q4

REPORT INFORMATION
  Report Type: 
  Country: None (occurrence: None)
  Receive Date: 20071226
  Receipt Date: 20071219
  Transmission Date: 20080405
  Serious: Yes (Hospitalization)
  Sender: FDA-Public Use
  Company Number: JP-BRISTOL-MYERS SQUIBB COMPANY-14022594

PATIENT
  Age: 54 Year
  Sex: Female

DRUGS (3)
  1. CYCLOPHOSPHAMIDE [Suspect]
     Indication: WEGENER'S GRANULOMATOSIS
  2. PREDONINE [Suspect]
     Indication: WEGENER'S GRANULOMATOSIS
     Dosage: ALSO TAKEN 60 MG FROM MAY-2006 TO UNKNOWN.
  3. METHYLPREDNISOLONE 16MG TAB [Suspect]
     Indication: WEGENER'S GRANULOMATOSIS
     Dates: start: 20060501

REACTIONS (1)
  - PSYCHOTIC DISORDER [None]
